FAERS Safety Report 14328258 (Version 6)
Quarter: 2020Q1

REPORT INFORMATION
  Report Type: Spontaneous
  Country: US (occurrence: US)
  Receive Date: 20171227
  Receipt Date: 20200302
  Transmission Date: 20200409
  Serious: No
  Sender: FDA-Public Use
  Company Number: US-PFIZER INC-2017548633

PATIENT
  Age: 62 Year
  Sex: Male

DRUGS (3)
  1. EMCYT [Suspect]
     Active Substance: ESTRAMUSTINE PHOSPHATE SODIUM
     Indication: PROSTATE CANCER
     Dosage: UNK
  2. SPIRONOLACTONE. [Suspect]
     Active Substance: SPIRONOLACTONE
     Dosage: 12 MG, 2X/DAY (MORNING AND NIGHT)
  3. EMCYT [Suspect]
     Active Substance: ESTRAMUSTINE PHOSPHATE SODIUM
     Indication: NEOPLASM MALIGNANT
     Dosage: 280 MG, CYCLIC (TWICE DAILY 4 WEEKS ON AND 2 WEEKS OFF)
     Dates: start: 201708

REACTIONS (4)
  - Nausea [Unknown]
  - Blood pressure decreased [Unknown]
  - Malaise [Unknown]
  - Renal disorder [Unknown]
